FAERS Safety Report 20824832 (Version 2)
Quarter: 2022Q3

REPORT INFORMATION
  Report Type: Spontaneous
  Country: US (occurrence: US)
  Receive Date: 20220513
  Receipt Date: 20220812
  Transmission Date: 20221026
  Serious: No
  Sender: FDA-Public Use
  Company Number: US-BRISTOL-MYERS SQUIBB COMPANY-2022-034951

PATIENT
  Age: 66 Year
  Sex: Female

DRUGS (1)
  1. REVLIMID [Suspect]
     Active Substance: LENALIDOMIDE
     Indication: Plasma cell myeloma
     Dosage: DOSE: 2.5 MILLIGRAM, FREQ: TAKE 1 CAPSULE BY MOUTH EVERYDAY FOR 21 DAYS OF A 28-DAY CYCLE
     Route: 048
     Dates: start: 20210222

REACTIONS (1)
  - Diarrhoea [Unknown]
